FAERS Safety Report 8187811-4 (Version None)
Quarter: 2012Q1

REPORT INFORMATION
  Report Type: 
  Country: None (occurrence: None)
  Receive Date: 20120306
  Receipt Date: 20120223
  Transmission Date: 20120608
  Serious: Yes (Other)
  Sender: FDA-Public Use
  Company Number: JP-GILEAD-2012-0051249

PATIENT
  Age: 47 Year
  Sex: Male

DRUGS (1)
  1. HEPSERA [Suspect]
     Indication: PRODUCT USED FOR UNKNOWN INDICATION
     Dosage: UNK
     Route: 048

REACTIONS (3)
  - GAIT DISTURBANCE [None]
  - OSTEOMALACIA [None]
  - BODY HEIGHT DECREASED [None]
